FAERS Safety Report 25333757 (Version 1)
Quarter: 2025Q2

REPORT INFORMATION
  Report Type: Report from Study
  Country: US (occurrence: None)
  Receive Date: 20250520
  Receipt Date: 20250520
  Transmission Date: 20250716
  Serious: Yes (Hospitalization, Other)
  Sender: ADAMAS PHARMA
  Company Number: US-ADAMAS Pharma-ADM202410-003968

PATIENT
  Age: 72 Year
  Sex: Male

DRUGS (16)
  1. GOCOVRI [Suspect]
     Active Substance: AMANTADINE
     Indication: Dyskinesia
     Route: 048
     Dates: start: 20240830
  2. GOCOVRI [Suspect]
     Active Substance: AMANTADINE
     Indication: Parkinson^s disease
     Route: 048
     Dates: start: 202408
  3. GOCOVRI [Suspect]
     Active Substance: AMANTADINE
     Route: 048
     Dates: start: 20240830
  4. BENZTROPINE [Concomitant]
     Active Substance: BENZTROPINE
  5. CANDESARTAN [Concomitant]
     Active Substance: CANDESARTAN
  6. CARBIDOPA\LEVODOPA [Concomitant]
     Active Substance: CARBIDOPA\LEVODOPA
  7. CARBIDOPA\LEVODOPA [Concomitant]
     Active Substance: CARBIDOPA\LEVODOPA
  8. CITALOPRAM [Concomitant]
     Active Substance: CITALOPRAM
  9. FENOFIBRATE [Concomitant]
     Active Substance: FENOFIBRATE
  10. GABAPENTIN [Concomitant]
     Active Substance: GABAPENTIN
  11. Neupro Dis [Concomitant]
  12. ROPINIROLE [Concomitant]
     Active Substance: ROPINIROLE
  13. FAMOTIDINE [Concomitant]
     Active Substance: FAMOTIDINE
  14. FAMOTIDINE [Concomitant]
     Active Substance: FAMOTIDINE
  15. ACETAMINOPHEN\HYDROCODONE [Concomitant]
     Active Substance: ACETAMINOPHEN\HYDROCODONE
  16. TAMSULOSIN [Concomitant]
     Active Substance: TAMSULOSIN

REACTIONS (6)
  - Asthenia [Not Recovered/Not Resolved]
  - Dyspnoea [Unknown]
  - Neuropathy peripheral [Not Recovered/Not Resolved]
  - Peripheral swelling [Unknown]
  - Gait disturbance [Unknown]
  - Inappropriate schedule of product administration [Unknown]

NARRATIVE: CASE EVENT DATE: 20240801
